FAERS Safety Report 11947857 (Version 2)
Quarter: 2016Q1

REPORT INFORMATION
  Report Type: Spontaneous
  Country: IT (occurrence: IT)
  Receive Date: 20160125
  Receipt Date: 20160126
  Transmission Date: 20160526
  Serious: Yes (Death, Other)
  Sender: FDA-Public Use
  Company Number: IT-AMGEN-ITASP2016007815

PATIENT
  Age: 73 Year
  Sex: Female
  Weight: 73 kg

DRUGS (4)
  1. ACYCLOVIR                          /00587301/ [Concomitant]
     Active Substance: ACYCLOVIR
     Dosage: 400 MG, BID
     Route: 048
     Dates: start: 20151111
  2. DEXAMETHASONE. [Concomitant]
     Active Substance: DEXAMETHASONE
     Dosage: 20 MG, DAY 1,2,8,9,15,16
     Route: 042
     Dates: start: 20151111, end: 20151229
  3. GRANISETRON [Concomitant]
     Active Substance: GRANISETRON
     Dosage: 3.1 MG/H
     Route: 062
     Dates: start: 20151210, end: 20160104
  4. CARFILZOMIB [Suspect]
     Active Substance: CARFILZOMIB
     Indication: PRODUCT USED FOR UNKNOWN INDICATION
     Dosage: 25 MG/45MG/50MG/M2 DAY 1,2,8,9,15,16 EVERY 28 DAYS
     Route: 042
     Dates: start: 20151111, end: 20151229

REACTIONS (1)
  - Atrial fibrillation [Fatal]

NARRATIVE: CASE EVENT DATE: 20160110
